FAERS Safety Report 18077790 (Version 7)
Quarter: 2020Q4

REPORT INFORMATION
  Report Type: Spontaneous
  Country: DE (occurrence: DE)
  Receive Date: 20200728
  Receipt Date: 20201214
  Transmission Date: 20210113
  Serious: Yes (Other)
  Sender: FDA-Public Use
  Company Number: DE-AUROBINDO-AUR-APL-2020-036749

PATIENT
  Sex: Female
  Weight: 49 kg

DRUGS (7)
  1. LETROZOLE. [Suspect]
     Active Substance: LETROZOLE
     Dosage: 2.5 MILLIGRAM, ONCE A DAY
     Route: 048
     Dates: start: 20200713
  2. KISQALI [Suspect]
     Active Substance: RIBOCICLIB
     Dosage: 400 MILLIGRAM, ONCE A DAY, (SCHEMA 21 DAYS INTAKE, 7 DAYS PAUSE)
     Route: 048
     Dates: start: 20201110
  3. LETROZOLE. [Suspect]
     Active Substance: LETROZOLE
     Indication: BREAST CANCER METASTATIC
     Dosage: 2.5 MILLIGRAM, ONCE A DAY
     Route: 048
     Dates: start: 20200701
  4. KISQALI [Suspect]
     Active Substance: RIBOCICLIB
     Dosage: 600 MILLIGRAM, ONCE A DAY,(SCHEMA 21 DAYS INTAKE, 7 DAYS PAUSE)
     Route: 048
     Dates: start: 20200713, end: 20200714
  5. KISQALI [Suspect]
     Active Substance: RIBOCICLIB
     Dosage: 400 MILLIGRAM, ONCE A DAY, (SCHEMA 21 DAYS INTAKE, 7 DAYS PAUSE)
     Route: 048
     Dates: start: 20200909, end: 20201103
  6. KISQALI [Suspect]
     Active Substance: RIBOCICLIB
     Dosage: 400 MILLIGRAM, ONCE A DAY, (SCHEMA 21 DAYS INTAKE, 7 DAYS PAUSE)
     Route: 048
     Dates: start: 20200729, end: 20200825
  7. KISQALI [Suspect]
     Active Substance: RIBOCICLIB
     Indication: BREAST CANCER METASTATIC
     Dosage: 600 MILLIGRAM, ONCE A DAY,(SCHEMA 21 DAYS INTAKE, 7 DAYS PAUSE)
     Route: 048
     Dates: start: 20200701

REACTIONS (4)
  - Leukopenia [Recovering/Resolving]
  - Neutropenia [Recovering/Resolving]
  - Thrombocytopenia [Recovering/Resolving]
  - Pneumonia [Recovered/Resolved]

NARRATIVE: CASE EVENT DATE: 20200714
